FAERS Safety Report 12379286 (Version 2)
Quarter: 2016Q2

REPORT INFORMATION
  Report Type: Spontaneous
  Country: FR (occurrence: FR)
  Receive Date: 20160517
  Receipt Date: 20160603
  Transmission Date: 20160815
  Serious: Yes (Other)
  Sender: FDA-Public Use
  Company Number: FR-009507513-1605FRA007752

PATIENT
  Sex: Female
  Weight: 78 kg

DRUGS (9)
  1. HAVLANE [Concomitant]
     Active Substance: LOPRAZOLAM
     Dosage: 2.5 MG, QD
  2. DOLIPRANE [Suspect]
     Active Substance: ACETAMINOPHEN
     Indication: ARTHRALGIA
     Dosage: 1000 MG, QID (IN THE MORNING, AT LUNCH, IN THE EVENING AND AT NIGHT)
     Route: 048
     Dates: start: 2009
  3. TEMESTA [Concomitant]
     Active Substance: LORAZEPAM
     Dosage: 1 DF, QD
  4. AMAREL [Suspect]
     Active Substance: GLIMEPIRIDE
     Indication: DIABETES MELLITUS
     Dosage: 2 MG, UNK
  5. JANUVIA [Suspect]
     Active Substance: SITAGLIPTIN PHOSPHATE
     Indication: DIABETES MELLITUS
     Dosage: 100 MG, QD
     Route: 048
     Dates: start: 2009
  6. DOLIPRANE [Suspect]
     Active Substance: ACETAMINOPHEN
     Dosage: DOSE REDUCED TO TWO TABLETS
     Route: 048
  7. DEROXAT [Concomitant]
     Active Substance: PAROXETINE HYDROCHLORIDE
     Dosage: 2 DF, QD
  8. CRESTOR [Concomitant]
     Active Substance: ROSUVASTATIN CALCIUM
     Dosage: 5 MG, QD
  9. SELOKEN [Concomitant]
     Active Substance: METOPROLOL
     Dosage: 1/2 DF, QD

REACTIONS (1)
  - Diabetes mellitus inadequate control [Unknown]
